FAERS Safety Report 18399769 (Version 1)
Quarter: 2020Q4

REPORT INFORMATION
  Report Type: Spontaneous
  Country: US (occurrence: US)
  Receive Date: 20201019
  Receipt Date: 20201019
  Transmission Date: 20210114
  Serious: No
  Sender: FDA-Public Use
  Company Number: US-ALLERGAN-2019827US

PATIENT
  Age: 45 Year
  Sex: Female

DRUGS (2)
  1. VRAYLAR [Suspect]
     Active Substance: CARIPRAZINE
     Indication: HALLUCINATION, AUDITORY
     Dosage: 1.5 MG, QD
     Route: 048
     Dates: start: 202004, end: 202004
  2. VENLAFAXINE [Concomitant]
     Active Substance: VENLAFAXINE HYDROCHLORIDE
     Indication: PRODUCT USED FOR UNKNOWN INDICATION
     Dosage: 150 MG, QD
     Route: 048

REACTIONS (5)
  - Restlessness [Not Recovered/Not Resolved]
  - Off label use [Unknown]
  - Skin reaction [Recovered/Resolved]
  - Tardive dyskinesia [Recovered/Resolved]
  - Feeling abnormal [Recovered/Resolved]

NARRATIVE: CASE EVENT DATE: 202004
